FAERS Safety Report 16424527 (Version 1)
Quarter: 2019Q2

REPORT INFORMATION
  Report Type: Spontaneous
  Country: IT (occurrence: IT)
  Receive Date: 20190613
  Receipt Date: 20190613
  Transmission Date: 20190711
  Serious: Yes (Hospitalization, Other)
  Sender: FDA-Public Use
  Company Number: IT-BRISTOL-MYERS SQUIBB COMPANY-BMS-2019-055018

PATIENT
  Age: 58 Year
  Sex: Female

DRUGS (1)
  1. NIVOLUMAB [Suspect]
     Active Substance: NIVOLUMAB
     Indication: RENAL CANCER METASTATIC
     Dosage: 480MG FLAT DOSE
     Route: 065
     Dates: start: 20180801, end: 20190517

REACTIONS (1)
  - Diabetic hyperglycaemic coma [Recovering/Resolving]

NARRATIVE: CASE EVENT DATE: 20190418
